FAERS Safety Report 9958992 (Version 1)
Quarter: 2014Q1

REPORT INFORMATION
  Report Type: Spontaneous
  Country: US (occurrence: None)
  Receive Date: 20140228
  Receipt Date: 20140228
  Transmission Date: 20141002
  Serious: No
  Sender: FDA-Public Use
  Company Number: None

PATIENT
  Age: 76 Year
  Sex: Female
  Weight: 48.08 kg

DRUGS (15)
  1. VIGAMOX [Suspect]
     Indication: CATARACT OPERATION
     Dosage: 0.5% AS BASE?1 DROP IN OPERATIVE EYE ?3 TIMES/DAY?DROP IN EYE
     Dates: start: 20140119, end: 20140127
  2. VIGAMOX [Suspect]
     Indication: ANTIBIOTIC THERAPY
     Dosage: 0.5% AS BASE?1 DROP IN OPERATIVE EYE ?3 TIMES/DAY?DROP IN EYE
     Dates: start: 20140119, end: 20140127
  3. TOPROL XL [Concomitant]
  4. LISINOPRIL [Concomitant]
  5. INSPRA [Concomitant]
  6. DIOVANHCTZ [Concomitant]
  7. DILTIAZEM [Concomitant]
  8. SINGULAR [Concomitant]
  9. CLINDAMYCIN [Concomitant]
  10. TRI-BORN PLUS [Concomitant]
  11. ACETAMINOPHEN [Concomitant]
  12. BENADRYL [Concomitant]
  13. PROBIOTIC-5 [Concomitant]
  14. VITAMIN D3 [Concomitant]
  15. NAPHCON A [Concomitant]

REACTIONS (2)
  - Dizziness [None]
  - Dizziness [None]
